FAERS Safety Report 15758723 (Version 6)
Quarter: 2019Q1

REPORT INFORMATION
  Report Type: Spontaneous
  Country: SI (occurrence: SI)
  Receive Date: 20181225
  Receipt Date: 20190122
  Transmission Date: 20190417
  Serious: Yes (Hospitalization, Other)
  Sender: FDA-Public Use
  Company Number: PHHY2018SI189251

PATIENT
  Age: 71 Year
  Sex: Male

DRUGS (5)
  1. EDEMID [Suspect]
     Active Substance: FUROSEMIDE
     Indication: PRODUCT USED FOR UNKNOWN INDICATION
     Dosage: 1 DF, UNK
     Route: 065
  2. AMLODIPINE [Suspect]
     Active Substance: AMLODIPINE BESYLATE
     Indication: PRODUCT USED FOR UNKNOWN INDICATION
     Dosage: 5 MG, QD
     Route: 065
  3. OLIVIN (ENALAPRIL MALEATE) [Suspect]
     Active Substance: ENALAPRIL MALEATE
     Indication: PRODUCT USED FOR UNKNOWN INDICATION
     Dosage: UNK
     Route: 065
  4. VALSARTAN. [Suspect]
     Active Substance: VALSARTAN
     Indication: PRODUCT USED FOR UNKNOWN INDICATION
     Dosage: 80 MG, UNK
     Route: 065
  5. PRENEWEL [Suspect]
     Active Substance: INDAPAMIDE\PERINDOPRIL ERBUMINE
     Indication: PRODUCT USED FOR UNKNOWN INDICATION
     Dosage: UNK
     Route: 065

REACTIONS (39)
  - Lung infiltration [Unknown]
  - Pneumonitis [Unknown]
  - Dyspnoea [Unknown]
  - Pulmonary renal syndrome [Unknown]
  - Paraesthesia [Unknown]
  - Muscular weakness [Unknown]
  - Steroid diabetes [Unknown]
  - Haemorrhoids [Unknown]
  - Nausea [Unknown]
  - Anti-neutrophil cytoplasmic antibody positive vasculitis [Unknown]
  - Helicobacter gastritis [Recovering/Resolving]
  - Pulmonary embolism [Unknown]
  - Back pain [Unknown]
  - Blood test abnormal [Unknown]
  - Hypotension [Unknown]
  - Musculoskeletal pain [Unknown]
  - Haematuria [Unknown]
  - Asthenia [Unknown]
  - Anaemia [Unknown]
  - Blood pressure increased [Unknown]
  - Lower respiratory tract infection [Recovering/Resolving]
  - Polyneuropathy [Unknown]
  - Neck pain [Unknown]
  - Vertigo [Unknown]
  - Urine analysis abnormal [Unknown]
  - Rales [Unknown]
  - Haemoptysis [Unknown]
  - Renal failure [Unknown]
  - Bundle branch block left [Unknown]
  - Cough [Unknown]
  - Oedema peripheral [Unknown]
  - Chest pain [Unknown]
  - Flatulence [Unknown]
  - Tachypnoea [Unknown]
  - Oropharyngeal pain [Unknown]
  - Dizziness [Unknown]
  - Proteinuria [Unknown]
  - Speech disorder [Unknown]
  - Calcinosis [Unknown]
